FAERS Safety Report 20671984 (Version 3)
Quarter: 2022Q2

REPORT INFORMATION
  Report Type: Spontaneous
  Country: US (occurrence: US)
  Receive Date: 20220405
  Receipt Date: 20220623
  Transmission Date: 20220721
  Serious: Yes (Other)
  Sender: FDA-Public Use
  Company Number: US-NOVOPROD-903915

PATIENT
  Sex: Male

DRUGS (1)
  1. LEVEMIR [Suspect]
     Active Substance: INSULIN DETEMIR
     Indication: Product used for unknown indication
     Dosage: 18 UNITS
     Route: 058

REACTIONS (4)
  - Discomfort [Unknown]
  - Agitation [Unknown]
  - Device leakage [Unknown]
  - Device failure [Not Recovered/Not Resolved]
